FAERS Safety Report 8110841-5 (Version None)
Quarter: 2012Q1

REPORT INFORMATION
  Report Type: 
  Country: None (occurrence: None)
  Receive Date: 20120201
  Receipt Date: 20120201
  Transmission Date: 20120608
  Serious: Yes (Hospitalization)
  Sender: FDA-Public Use
  Company Number: None

PATIENT
  Age: 54 Year
  Sex: Female
  Weight: 62.3 kg

DRUGS (2)
  1. LAMOTRIGINE [Suspect]
     Indication: BIPOLAR DISORDER
     Dosage: 25 MG BID PO
     Route: 048
     Dates: start: 20110927, end: 20110927
  2. LAMOTRIGINE [Suspect]
     Indication: BIPOLAR DISORDER
     Dosage: 25 MG BID PO
     Route: 048
     Dates: start: 20110927, end: 20110927

REACTIONS (5)
  - ALANINE AMINOTRANSFERASE INCREASED [None]
  - RASH [None]
  - RENAL FAILURE ACUTE [None]
  - PRURITUS [None]
  - HYPOTENSION [None]
